FAERS Safety Report 21995575 (Version 2)
Quarter: 2023Q1

REPORT INFORMATION
  Report Type: Spontaneous
  Country: US (occurrence: US)
  Receive Date: 20230215
  Receipt Date: 20230217
  Transmission Date: 20230418
  Serious: No
  Sender: FDA-Public Use
  Company Number: US-SA-SAC20230213001074

PATIENT
  Age: 34 Year
  Sex: Female

DRUGS (6)
  1. DUPIXENT [Suspect]
     Active Substance: DUPILUMAB
     Indication: Dermatitis atopic
     Dosage: 300 MG, QOW
     Route: 058
     Dates: start: 202209
  2. ATOMOXETINE [Concomitant]
     Active Substance: ATOMOXETINE
  3. CHLORTHALIDONE [Concomitant]
     Active Substance: CHLORTHALIDONE
  4. MUPIROCIN [Concomitant]
     Active Substance: MUPIROCIN
  5. OMEPRAZOLE [Concomitant]
     Active Substance: OMEPRAZOLE
  6. SERTRALINE [Concomitant]
     Active Substance: SERTRALINE HYDROCHLORIDE

REACTIONS (8)
  - Blister [Unknown]
  - Dry skin [Unknown]
  - Sensitivity to weather change [Unknown]
  - Peripheral swelling [Unknown]
  - Skin ulcer [Unknown]
  - Exposure to SARS-CoV-2 [Unknown]
  - Fatigue [Unknown]
  - Injection site pruritus [Recovered/Resolved]
